FAERS Safety Report 8417204-3 (Version None)
Quarter: 2012Q2

REPORT INFORMATION
  Report Type: 
  Country: None (occurrence: None)
  Receive Date: 20120606
  Receipt Date: 20120529
  Transmission Date: 20120825
  Serious: Yes (Hospitalization)
  Sender: FDA-Public Use
  Company Number: US-CELGENEUS-163-21880-12033651

PATIENT
  Sex: Male

DRUGS (9)
  1. LIPITOR [Concomitant]
     Dosage: 20 MILLIGRAM
     Route: 048
  2. POTASSIUM CHLORIDE [Concomitant]
     Indication: HYPOKALAEMIA
     Dosage: 40 MILLIEQUIVALENTS
     Route: 048
  3. ATENOLOL [Concomitant]
     Dosage: 25 MILLIGRAM
     Route: 065
  4. TENORETIC 100 [Concomitant]
     Indication: HYPERTENSION
     Dosage: 25 MILLIGRAM
     Route: 048
  5. REVLIMID [Suspect]
     Dosage: 10 MILLIGRAM
     Route: 048
     Dates: start: 20120308, end: 20120322
  6. POTASSIUM ACETATE [Concomitant]
     Dosage: 2 MILLIEQUIVALENTS
     Route: 065
  7. ASPIRIN [Concomitant]
     Dosage: 81 MILLIGRAM
     Route: 048
  8. LEVOTHYROXINE SODIUM [Concomitant]
     Dosage: 0.05
     Route: 065
  9. DIPHENHYDRAMINE HCL [Concomitant]
     Dosage: 50 MILLIGRAM
     Route: 065

REACTIONS (3)
  - PAIN IN EXTREMITY [None]
  - LIVER FUNCTION TEST ABNORMAL [None]
  - RENAL FAILURE ACUTE [None]
